FAERS Safety Report 18962740 (Version 1)
Quarter: 2021Q1

REPORT INFORMATION
  Report Type: Spontaneous
  Country: US (occurrence: US)
  Receive Date: 20210302
  Receipt Date: 20210302
  Transmission Date: 20210420
  Serious: Yes (Other)
  Sender: FDA-Public Use
  Company Number: None

PATIENT
  Age: 71 Year
  Sex: Male

DRUGS (1)
  1. AZATHIOPRINE (AZATHIOPRINE 50MG TAB) [Suspect]
     Active Substance: AZATHIOPRINE
     Indication: PAIN
     Dates: start: 20200601, end: 20200616

REACTIONS (7)
  - Vomiting [None]
  - Hepatotoxicity [None]
  - Hepatic enzyme increased [None]
  - Alanine aminotransferase increased [None]
  - Abdominal pain [None]
  - Nausea [None]
  - Aspartate aminotransferase increased [None]

NARRATIVE: CASE EVENT DATE: 20200811
